FAERS Safety Report 4765970-0 (Version None)
Quarter: 2005Q3

REPORT INFORMATION
  Report Type: 
  Country: None (occurrence: None)
  Receive Date: 20050908
  Receipt Date: 20050825
  Transmission Date: 20060218
  Serious: Yes (Other)
  Sender: FDA-Public Use
  Company Number: 200513454BCC

PATIENT
  Age: 32 Year
  Sex: Female
  Weight: 72.5755 kg

DRUGS (5)
  1. ALEVE [Suspect]
     Indication: ARTHRITIS
     Dosage: 220 MG, ONCE, ORAL
     Route: 048
     Dates: start: 20050822
  2. MIDOL [Suspect]
     Indication: DYSMENORRHOEA
     Dosage: 1000 MG, ONCE, ORAL
     Route: 048
     Dates: start: 20050822
  3. TYLENOL SIMPLY SLEEP CAPLETS (DIPHENHYDRAMINE) [Suspect]
     Indication: INSOMNIA
     Dosage: 50 MG, ONCE, ORAL
     Route: 048
     Dates: start: 20050824
  4. ONE-A-DAY VITAMIN [Suspect]
     Dosage: QD, ORAL
     Route: 048
  5. ASPIRIN [Suspect]
     Dosage: 1000 MG, OM, ORAL
     Route: 048

REACTIONS (6)
  - FATIGUE [None]
  - HEART RATE DECREASED [None]
  - HYPOTENSION [None]
  - SIMILAR REACTION ON PREVIOUS EXPOSURE TO DRUG [None]
  - SYNCOPE [None]
  - VOMITING [None]
